FAERS Safety Report 22333488 (Version 1)
Quarter: 2023Q2

REPORT INFORMATION
  Report Type: Other
  Country: GB (occurrence: GB)
  Receive Date: 20230517
  Receipt Date: 20230517
  Transmission Date: 20230722
  Serious: Yes (Other)
  Sender: FDA-Public Use
  Company Number: GB-MHRA-MED-202305081857246160-HMSJR

PATIENT

DRUGS (2)
  1. SOLIFENACIN SUCCINATE [Suspect]
     Active Substance: SOLIFENACIN SUCCINATE
     Indication: Hypertonic bladder
     Dosage: 5 MILLIGRAM, OD
     Route: 065
     Dates: start: 20230405, end: 20230422
  2. SOLIFENACIN SUCCINATE [Suspect]
     Active Substance: SOLIFENACIN SUCCINATE
     Indication: Nocturia

REACTIONS (9)
  - Medication error [Unknown]
  - Dizziness [Recovered/Resolved]
  - Drug ineffective [Unknown]
  - Thirst [Unknown]
  - Asthenia [Unknown]
  - Depression [Unknown]
  - Nocturia [Unknown]
  - Dry mouth [Unknown]
  - Dyspepsia [Unknown]
